FAERS Safety Report 5018540-3 (Version None)
Quarter: 2006Q2

REPORT INFORMATION
  Report Type: 
  Country: None (occurrence: None)
  Receive Date: 20060605
  Receipt Date: 20060503
  Transmission Date: 20061013
  Serious: Yes (Hospitalization)
  Sender: FDA-Public Use
  Company Number: FR-MERCK-0605USA03887

PATIENT
  Age: 81 Year
  Sex: Female

DRUGS (4)
  1. ZOCOR [Suspect]
     Route: 048
  2. RISPERDAL [Suspect]
     Route: 065
  3. ZOLOFT [Suspect]
     Route: 065
  4. ARICEPT [Suspect]
     Route: 065

REACTIONS (4)
  - BUNDLE BRANCH BLOCK LEFT [None]
  - DEEP VEIN THROMBOSIS [None]
  - HEPARIN-INDUCED THROMBOCYTOPENIA [None]
  - PHLEBITIS [None]
